FAERS Safety Report 6307264-8 (Version None)
Quarter: 2009Q3

REPORT INFORMATION
  Report Type: 
  Country: None (occurrence: None)
  Receive Date: 20090813
  Receipt Date: 20070831
  Transmission Date: 20100115
  Serious: Yes (Other)
  Sender: FDA-Public Use
  Company Number: US-ASTRAZENECA-2006UW27724

PATIENT
  Age: 40 Year
  Sex: Female
  Weight: 74.8 kg

DRUGS (22)
  1. SEROQUEL [Suspect]
     Indication: DEPRESSION
     Dosage: 25-300 MG
     Route: 048
     Dates: start: 19990101, end: 20070902
  2. SEROQUEL [Suspect]
     Indication: SLEEP DISORDER
     Dosage: 25-300 MG
     Route: 048
     Dates: start: 19990101, end: 20070902
  3. SEROQUEL [Suspect]
     Indication: ANXIETY
     Dosage: 25-300 MG
     Route: 048
     Dates: start: 19990101, end: 20070902
  4. SEROQUEL [Suspect]
     Dosage: 50 MG-600 MG
     Route: 048
     Dates: start: 19991001
  5. SEROQUEL [Suspect]
     Dosage: 50 MG-600 MG
     Route: 048
     Dates: start: 19991001
  6. SEROQUEL [Suspect]
     Dosage: 50 MG-600 MG
     Route: 048
     Dates: start: 19991001
  7. SERZONE [Concomitant]
     Indication: DEPRESSION
     Dates: start: 19990101
  8. SERZONE [Concomitant]
     Dates: start: 19991001
  9. PREDNISONE [Concomitant]
     Dates: start: 19960911
  10. PREVACID [Concomitant]
     Dates: start: 19961025
  11. PERCOCET [Concomitant]
     Indication: PAIN
     Dosage: 5/325 EVERY SIX HOUR
     Dates: start: 20031001
  12. ELAVIL [Concomitant]
     Indication: PAIN
     Dates: start: 20031001
  13. VIOXX [Concomitant]
     Indication: PAIN
     Dates: start: 20040401
  14. NEURONTIN [Concomitant]
     Indication: PAIN
     Dates: start: 20040630
  15. LEXAPRO [Concomitant]
     Dates: start: 20060314, end: 20060720
  16. CLONAZEPAM [Concomitant]
     Dates: start: 20060524
  17. TRAZODONE HCL [Concomitant]
     Dates: start: 20060427
  18. AMITRIPTYLINE HCL [Concomitant]
     Dates: start: 20060511
  19. AMITRIP/CDP [Concomitant]
     Dosage: 12.5/5
     Dates: start: 20060622
  20. CYMBALTA [Concomitant]
     Dates: start: 20060630, end: 20060720
  21. LORAZEPAM [Concomitant]
     Dates: start: 20060104
  22. AVINZA [Concomitant]
     Indication: PAIN
     Dates: start: 20040401

REACTIONS (3)
  - DIABETES MELLITUS [None]
  - NEUROPATHY PERIPHERAL [None]
  - TYPE 2 DIABETES MELLITUS [None]
